FAERS Safety Report 23958677 (Version 1)
Quarter: 2024Q2

REPORT INFORMATION
  Report Type: Spontaneous
  Country: CN (occurrence: CN)
  Receive Date: 20240610
  Receipt Date: 20240610
  Transmission Date: 20240716
  Serious: Yes (Other)
  Sender: FDA-Public Use
  Company Number: None

PATIENT
  Age: 48 Year
  Sex: Male
  Weight: 64 kg

DRUGS (3)
  1. VICTOZA [Suspect]
     Active Substance: LIRAGLUTIDE
     Indication: Type 2 diabetes mellitus
     Dosage: 0.6 MG, QD
     Route: 058
     Dates: start: 20240518
  2. SODIUM CHLORIDE [Concomitant]
     Active Substance: SODIUM CHLORIDE
     Indication: Prophylaxis
     Dosage: 250 ML, QD
     Route: 042
     Dates: start: 20240518
  3. VITAMIN C [Concomitant]
     Active Substance: ASCORBIC ACID
     Indication: Prophylaxis
     Dosage: 2 G, QD
     Route: 042
     Dates: start: 20240518, end: 20240521

REACTIONS (4)
  - Anaphylactic shock [Recovering/Resolving]
  - Hypotension [Unknown]
  - Extensor plantar response [Unknown]
  - Rash [Unknown]

NARRATIVE: CASE EVENT DATE: 20240521
